FAERS Safety Report 20089736 (Version 2)
Quarter: 2021Q4

REPORT INFORMATION
  Report Type: Report from Study
  Country: US (occurrence: None)
  Receive Date: 20211119
  Receipt Date: 20211124
  Transmission Date: 20220303
  Serious: Yes (Hospitalization)
  Sender: FDA-Public Use
  Company Number: US-ROCHE-2956163

PATIENT
  Age: 79 Year
  Sex: Male
  Weight: 93.3 kg

DRUGS (14)
  1. GLOFITAMAB [Suspect]
     Active Substance: GLOFITAMAB
     Indication: B-cell lymphoma
     Dosage: ON 08/OCT/2021, THE PATIENT RECEIVED THE MOST RECENT DOSE OF DRUG 30 MG PRIOR TO AE/SAE FROM 3:30 PM
     Route: 042
     Dates: start: 20210923
  2. OBINUTUZUMAB [Suspect]
     Active Substance: OBINUTUZUMAB
     Indication: B-cell lymphoma
     Dosage: ON 15/SEP/2021, THE PATIENT RECEIVED THE MOST RECENT DOSE OF DRUG 1000 MG PRIOR TO SAE AT 12:00 PM.
     Route: 042
     Dates: start: 20210827
  3. TOCILIZUMAB [Suspect]
     Active Substance: TOCILIZUMAB
     Indication: B-cell lymphoma
     Dosage: ON 25/SEP/2021, THE PATIENT RECEIVED THE MOST RECENT DOSE OF DRUG 400 MG PRIOR TO SAE AT 8:39 AM.?EN
     Route: 042
     Dates: start: 20210925
  4. ACETAMINOPHEN [Concomitant]
     Active Substance: ACETAMINOPHEN
     Indication: Premedication
     Dates: start: 20211008, end: 20211008
  5. DIPHENHYDRAMINE [Concomitant]
     Active Substance: DIPHENHYDRAMINE
     Indication: Premedication
     Dates: start: 20211008, end: 20211008
  6. METHYLPREDNISOLONE [Concomitant]
     Active Substance: METHYLPREDNISOLONE
     Indication: Premedication
     Dates: start: 20211008, end: 20211008
  7. ACYCLOVIR [Concomitant]
     Active Substance: ACYCLOVIR
     Indication: Infection
     Dates: start: 20210922, end: 20211011
  8. ALLOPURINOL [Concomitant]
     Active Substance: ALLOPURINOL
     Dates: start: 20210923, end: 20211011
  9. ASPIRIN [Concomitant]
     Active Substance: ASPIRIN
     Dates: start: 20210923, end: 20211011
  10. ATORVASTATIN [Concomitant]
     Active Substance: ATORVASTATIN
     Dates: start: 20210922, end: 20211010
  11. METOPROLOL [Concomitant]
     Active Substance: METOPROLOL
     Dates: start: 20211011, end: 20211011
  12. METOPROLOL TARTRATE [Concomitant]
     Active Substance: METOPROLOL TARTRATE
     Dates: start: 20210922, end: 20211011
  13. SODIUM CHLORIDE [Concomitant]
     Active Substance: SODIUM CHLORIDE
     Dates: start: 20211008, end: 20211008
  14. PANTOPRAZOLE [Concomitant]
     Active Substance: PANTOPRAZOLE
     Dates: start: 20210927, end: 20211011

REACTIONS (1)
  - Arterial injury [Not Recovered/Not Resolved]

NARRATIVE: CASE EVENT DATE: 20211107
